FAERS Safety Report 4519960-3 (Version None)
Quarter: 2004Q4

REPORT INFORMATION
  Report Type: 
  Country: None (occurrence: None)
  Receive Date: 20041201
  Receipt Date: 20041201
  Transmission Date: 20050328
  Serious: Yes (Hospitalization)
  Sender: FDA-Public Use
  Company Number: None

PATIENT
  Age: 66 Year
  Sex: Male
  Weight: 82.6 kg

DRUGS (15)
  1. CARBOPLATIN [Suspect]
  2. ETOPOSIDE [Suspect]
     Dosage: 156 MGIV
     Route: 042
     Dates: start: 20040407, end: 20040407
  3. FLUTICASONE PROPIONATE [Concomitant]
  4. SERTRALINE HCL [Concomitant]
  5. DIAZEPAM [Concomitant]
  6. DOXEPIN HCL [Concomitant]
  7. METOPROLOL TARTRATE [Concomitant]
  8. ALBUTEROL SULFATE AND IPRATROPIUM BROMIDE [Concomitant]
  9. ETOPOSIDE [Concomitant]
  10. PREDNISONE [Concomitant]
  11. DARBEPOETIN ALFA [Concomitant]
  12. GABAPENTIN [Concomitant]
  13. RABEPRAZOLE SODIUM [Concomitant]
  14. ALBUTEROL [Concomitant]
  15. PROCHLORPERAZINE MALEATE [Concomitant]

REACTIONS (1)
  - NEUTROPENIA [None]
